FAERS Safety Report 6426115-4 (Version None)
Quarter: 2009Q4

REPORT INFORMATION
  Report Type: 
  Country: None (occurrence: None)
  Receive Date: 20091104
  Receipt Date: 20091102
  Transmission Date: 20100525
  Serious: Yes (Life-Threatening, Hospitalization)
  Sender: FDA-Public Use
  Company Number: FR-ASTRAZENECA-2009SE24115

PATIENT
  Age: 40 Year
  Sex: Female

DRUGS (3)
  1. DIPRIVAN [Suspect]
     Route: 042
     Dates: start: 20090331, end: 20090331
  2. ULTIVA [Suspect]
     Dates: start: 20090331, end: 20090331
  3. CELOCURINE [Suspect]
     Dates: start: 20090331, end: 20090331

REACTIONS (1)
  - ANAPHYLACTIC SHOCK [None]
